FAERS Safety Report 8116608-6 (Version None)
Quarter: 2012Q1

REPORT INFORMATION
  Report Type: 
  Country: None (occurrence: None)
  Receive Date: 20120206
  Receipt Date: 20120124
  Transmission Date: 20120608
  Serious: Yes (Other)
  Sender: FDA-Public Use
  Company Number: PHHY2012ZA007378

PATIENT
  Sex: Male

DRUGS (1)
  1. EXFORGE [Suspect]
     Dosage: 1 DF (160 MG VALS AND 10 MG AMLO), UNK
     Dates: start: 20090101

REACTIONS (3)
  - BLOOD PRESSURE DECREASED [None]
  - METASTASES TO LIVER [None]
  - MALIGNANT MELANOMA [None]
